FAERS Safety Report 18191422 (Version 1)
Quarter: 2020Q3

REPORT INFORMATION
  Report Type: Other
  Country: CA (occurrence: CA)
  Receive Date: 20200824
  Receipt Date: 20200824
  Transmission Date: 20201103
  Serious: Yes (Hospitalization, Other)
  Sender: FDA-Public Use
  Company Number: CA-CELLTRION INC.-2020CA025357

PATIENT

DRUGS (76)
  1. APREPITANT. [Suspect]
     Active Substance: APREPITANT
     Dosage: UNK
     Route: 048
  2. DEXAMETHASONE. [Suspect]
     Active Substance: DEXAMETHASONE
     Dosage: UNK
     Route: 048
  3. DOXORUBICIN [Suspect]
     Active Substance: DOXORUBICIN
     Indication: BREAST CANCER
     Dosage: 136.0 MG, 1 EVERY 2 WEEKS / 1 EVERY 14 DAYS
     Route: 042
  4. FILGRASTIM [Suspect]
     Active Substance: FILGRASTIM
     Dosage: UNK, 1 EVERY 1 DAY
     Route: 065
  5. METOCLOPRAMIDE. [Suspect]
     Active Substance: METOCLOPRAMIDE
     Dosage: UNK, 4 EVERY 1 DAY
     Route: 048
  6. ONDANSETRON [Suspect]
     Active Substance: ONDANSETRON
     Dosage: UNK
     Route: 048
  7. ONDANSETRON [Suspect]
     Active Substance: ONDANSETRON
     Dosage: UNK
     Route: 048
  8. ONDANSETRON HYDROCHLORIDE. [Suspect]
     Active Substance: ONDANSETRON HYDROCHLORIDE
     Indication: SUPPORTIVE CARE
     Dosage: 8.0 MG
     Route: 048
  9. PACLITAXEL. [Suspect]
     Active Substance: PACLITAXEL
     Dosage: 393.0 MG
     Route: 042
  10. PEGFILGRASTIM [Suspect]
     Active Substance: PEGFILGRASTIM
     Indication: SUPPORTIVE CARE
     Dosage: 6.0 MG
     Route: 058
  11. TYLENOL WITH CODEINE [Suspect]
     Active Substance: ACETAMINOPHEN\CODEINE PHOSPHATE
     Indication: TARDIVE DYSKINESIA
     Dosage: 30.0 MG, 6 EVERY 1 DAY
     Route: 065
  12. TYLENOL WITH CODEINE [Suspect]
     Active Substance: ACETAMINOPHEN\CODEINE PHOSPHATE
     Indication: TARDIVE DYSKINESIA
     Dosage: 30.0 MG, 1 EVERY 4 HOURS
     Route: 065
  13. TYLENOL WITH CODEINE [Suspect]
     Active Substance: ACETAMINOPHEN\CODEINE PHOSPHATE
     Dosage: UNK, 1 EVERY 4 HOURS
     Route: 065
  14. APREPITANT. [Suspect]
     Active Substance: APREPITANT
     Dosage: UNK
     Route: 048
  15. DEXAMETHASONE. [Suspect]
     Active Substance: DEXAMETHASONE
     Dosage: 20.0 MG, 1 EVERY 1 DAY
     Route: 048
  16. DOXORUBICIN HYDROCHLORIDE. [Suspect]
     Active Substance: DOXORUBICIN HYDROCHLORIDE
     Indication: BREAST CANCER
     Dosage: 136.0 MG, CYCLICAL
     Route: 042
  17. FILGRASTIM [Suspect]
     Active Substance: FILGRASTIM
     Dosage: 480.0 MG, 1 EVERY 1 DAY
     Route: 065
  18. LEVOFLOXACIN. [Suspect]
     Active Substance: LEVOFLOXACIN
     Indication: TARDIVE DYSKINESIA
     Dosage: 500.0 MG, 1 EVERY 1 DAY
     Route: 048
  19. ONDANSETRON [Suspect]
     Active Substance: ONDANSETRON
     Dosage: UNK
     Route: 048
  20. PACLITAXEL. [Suspect]
     Active Substance: PACLITAXEL
     Dosage: UNK
     Route: 042
  21. RANITIDINE. [Suspect]
     Active Substance: RANITIDINE
     Dosage: UNK, 2 EVERY 1 DAY
     Route: 048
  22. APREPITANT. [Suspect]
     Active Substance: APREPITANT
     Dosage: UNK
     Route: 048
  23. APREPITANT. [Suspect]
     Active Substance: APREPITANT
     Dosage: UNK
     Route: 048
  24. DEXAMETHASONE. [Suspect]
     Active Substance: DEXAMETHASONE
     Dosage: UNK
     Route: 048
  25. ENOXAPARIN [Suspect]
     Active Substance: ENOXAPARIN
     Indication: TARDIVE DYSKINESIA
     Dosage: 150.0 MG, 1 EVERY 1 DAY
     Route: 058
  26. FILGRASTIM [Suspect]
     Active Substance: FILGRASTIM
     Indication: SUPPORTIVE CARE
     Dosage: 480.0 MICROGRAM, 1 EVERY 1 DAY
     Route: 065
  27. ONDANSETRON [Suspect]
     Active Substance: ONDANSETRON
     Indication: SUPPORTIVE CARE
     Route: 048
  28. PEGFILGRASTIM [Suspect]
     Active Substance: PEGFILGRASTIM
     Dosage: 6.0 MG
     Route: 058
  29. TYLENOL WITH CODEINE [Suspect]
     Active Substance: ACETAMINOPHEN\CODEINE PHOSPHATE
     Dosage: 30 MG, 1 EVERY 4 HOURS
     Route: 065
  30. TRASTUZUMAB (UNKNOWN) [Suspect]
     Active Substance: TRASTUZUMAB
     Dosage: UNK
     Route: 065
  31. APREPITANT. [Suspect]
     Active Substance: APREPITANT
     Dosage: 125.0 MG, 1 EVERY 1 DAY
     Route: 048
  32. APREPITANT. [Suspect]
     Active Substance: APREPITANT
     Dosage: UNK
     Route: 048
  33. APREPITANT. [Suspect]
     Active Substance: APREPITANT
     Indication: PRODUCT USED FOR UNKNOWN INDICATION
     Dosage: 125.0 MG, 1 EVERY 1 DAY
     Route: 048
  34. DEXAMETHASONE. [Suspect]
     Active Substance: DEXAMETHASONE
     Indication: SUPPORTIVE CARE
     Dosage: UNK
     Route: 048
  35. FILGRASTIM [Suspect]
     Active Substance: FILGRASTIM
     Dosage: UNK, 1 EVERY 1 DAY
     Route: 065
  36. LEVOFLOXACIN. [Suspect]
     Active Substance: LEVOFLOXACIN
     Indication: TARDIVE DYSKINESIA
     Dosage: 500.0 MG, 1 EVERY 1 DAY
     Route: 048
  37. LEVOFLOXACIN. [Suspect]
     Active Substance: LEVOFLOXACIN
     Dosage: UNK, 1 EVERY 1 DAY
     Route: 048
  38. METOCLOPRAMIDE. [Suspect]
     Active Substance: METOCLOPRAMIDE
     Indication: TARDIVE DYSKINESIA
     Dosage: 10.0 MG, 4 EVERY 1 DAY
     Route: 048
  39. ONDANSETRON [Suspect]
     Active Substance: ONDANSETRON
     Dosage: UNK
     Route: 048
  40. ONDANSETRON [Suspect]
     Active Substance: ONDANSETRON
     Dosage: UNK
     Route: 048
  41. PACLITAXEL. [Suspect]
     Active Substance: PACLITAXEL
     Indication: BREAST CANCER
     Dosage: 393.0 MG
     Route: 042
  42. PACLITAXEL. [Suspect]
     Active Substance: PACLITAXEL
     Dosage: UNK
     Route: 042
  43. RANITIDINE. [Suspect]
     Active Substance: RANITIDINE
     Indication: TARDIVE DYSKINESIA
     Dosage: 150.0 MG, 2 EVERY 1 DAY
     Route: 048
  44. TRASTUZUMAB (UNKNOWN) [Suspect]
     Active Substance: TRASTUZUMAB
     Dosage: 866.0 MG
     Route: 065
  45. TRASTUZUMAB (UNKNOWN) [Suspect]
     Active Substance: TRASTUZUMAB
     Dosage: UNK
     Route: 065
  46. APREPITANT. [Suspect]
     Active Substance: APREPITANT
     Dosage: UNK
     Route: 048
  47. APREPITANT. [Suspect]
     Active Substance: APREPITANT
     Dosage: UNK
     Route: 048
  48. APREPITANT. [Suspect]
     Active Substance: APREPITANT
     Dosage: UNK
     Route: 048
  49. FILGRASTIM [Suspect]
     Active Substance: FILGRASTIM
     Dosage: UNK, 1 EVERY 1 DAY
     Route: 065
  50. ONDANSETRON [Suspect]
     Active Substance: ONDANSETRON
     Indication: SUPPORTIVE CARE
     Dosage: 8.0 MG
     Route: 048
  51. ONDANSETRON [Suspect]
     Active Substance: ONDANSETRON
     Dosage: UNK
     Route: 048
  52. PACLITAXEL. [Suspect]
     Active Substance: PACLITAXEL
     Indication: BREAST CANCER
     Dosage: 303.0 MG
     Route: 042
  53. PACLITAXEL. [Suspect]
     Active Substance: PACLITAXEL
     Dosage: UNK
     Route: 042
  54. PEGFILGRASTIM [Suspect]
     Active Substance: PEGFILGRASTIM
     Dosage: 6.0 MG
     Route: 058
  55. TYLENOL WITH CODEINE [Suspect]
     Active Substance: ACETAMINOPHEN\CODEINE PHOSPHATE
     Dosage: 1 EVERY 4 HOURS
     Route: 065
  56. TRASTUZUMAB (UNKNOWN) [Suspect]
     Active Substance: TRASTUZUMAB
     Indication: TARDIVE DYSKINESIA
     Dosage: 626.0 MG
     Route: 065
  57. TRASTUZUMAB (UNKNOWN) [Suspect]
     Active Substance: TRASTUZUMAB
     Dosage: 625.0 MG
     Route: 065
  58. APREPITANT. [Suspect]
     Active Substance: APREPITANT
     Indication: SUPPORTIVE CARE
     Dosage: 80.0 MG, 1 EVERY 1 DAY
     Route: 048
  59. APREPITANT. [Suspect]
     Active Substance: APREPITANT
     Dosage: UNK
     Route: 048
  60. DEXAMETHASONE. [Suspect]
     Active Substance: DEXAMETHASONE
     Dosage: UNK
     Route: 048
  61. ENOXAPARIN [Suspect]
     Active Substance: ENOXAPARIN
     Dosage: UNK, 1 EVERY 1 DAY
     Route: 058
  62. LORAZEPAM. [Suspect]
     Active Substance: LORAZEPAM
     Indication: TARDIVE DYSKINESIA
     Dosage: 0.5 MG, 2 EVERY 1 DAY
     Route: 048
  63. PROCYTOX [Suspect]
     Active Substance: CYCLOPHOSPHAMIDE
     Indication: BREAST CANCER
     Dosage: 1360.0 MG, CYCLICAL
     Route: 042
  64. TRASTUZUMAB (UNKNOWN) [Suspect]
     Active Substance: TRASTUZUMAB
     Dosage: UNK
     Route: 065
  65. APREPITANT. [Suspect]
     Active Substance: APREPITANT
     Dosage: UNK
     Route: 048
  66. BETAMETHASONE. [Suspect]
     Active Substance: BETAMETHASONE
     Indication: TARDIVE DYSKINESIA
     Dosage: UNK, 2 EVERY 1 DAY
     Route: 065
  67. DEXAMETHASONE. [Suspect]
     Active Substance: DEXAMETHASONE
     Indication: SUPPORTIVE CARE
     Dosage: 20.0 MG, 1 EVERY 1 DAY
     Route: 048
  68. LORAZEPAM. [Suspect]
     Active Substance: LORAZEPAM
     Dosage: UNK, 2 EVERY 1 DAY
     Route: 048
  69. ONDANSETRON [Suspect]
     Active Substance: ONDANSETRON
     Dosage: UNK
     Route: 048
  70. PACLITAXEL. [Suspect]
     Active Substance: PACLITAXEL
     Indication: BREAST CANCER
     Dosage: 243.0 MG
     Route: 042
  71. PEGFILGRASTIM [Suspect]
     Active Substance: PEGFILGRASTIM
     Dosage: 6.0 MG
     Route: 058
  72. PROCYTOX [Suspect]
     Active Substance: CYCLOPHOSPHAMIDE
     Indication: BREAST CANCER
     Dosage: 1360.0 MG, 1 EVERY 14 DAYS
     Route: 042
  73. PROCYTOX [Suspect]
     Active Substance: CYCLOPHOSPHAMIDE
     Dosage: UNK
     Route: 042
  74. TRASTUZUMAB (UNKNOWN) [Suspect]
     Active Substance: TRASTUZUMAB
     Dosage: UNK
     Route: 065
  75. LORAZEPAM. [Suspect]
     Active Substance: LORAZEPAM
     Indication: TARDIVE DYSKINESIA
     Dosage: 0.5 MG, 2 EVERY 1 DAY
     Route: 048
  76. PEGFILGRASTIM [Suspect]
     Active Substance: PEGFILGRASTIM
     Dosage: 6.0 MG
     Route: 058

REACTIONS (11)
  - Hypoxia [Recovered/Resolved]
  - Atelectasis [Recovered/Resolved]
  - Dyspnoea [Recovered/Resolved]
  - Gastrointestinal disorder [Recovered/Resolved]
  - Cough [Recovered/Resolved]
  - Fatigue [Recovered/Resolved]
  - Computerised tomogram thorax abnormal [Recovered/Resolved]
  - Off label use [Recovered/Resolved]
  - Nausea [Recovered/Resolved]
  - Pyrexia [Recovered/Resolved]
  - Rash [Recovered/Resolved]
